FAERS Safety Report 11362539 (Version 2)
Quarter: 2015Q3

REPORT INFORMATION
  Report Type: Report from Study
  Country: MX (occurrence: MX)
  Receive Date: 20150810
  Receipt Date: 20150902
  Transmission Date: 20151125
  Serious: No
  Sender: FDA-Public Use
  Company Number: PHHY2015MX093655

PATIENT
  Sex: Female
  Weight: 74.5 kg

DRUGS (5)
  1. EXFORGE HCT [Suspect]
     Active Substance: AMLODIPINE BESYLATE\HYDROCHLOROTHIAZIDE\VALSARTAN
     Indication: DIABETES MELLITUS
     Dosage: 2.5 DF (UNK/UNK/ 5 MG) (1 AT MORNING, ? AT MIDDAY AND 1 AT NIGHT)
     Route: 065
  2. SINORAL [Concomitant]
     Indication: DIABETES MELLITUS
     Dosage: 1.5 DF, (1 AT MORNING AND ? AT NIGHT)
     Route: 065
  3. FACTOSS [Concomitant]
     Indication: PRODUCT USED FOR UNKNOWN INDICATION
     Route: 065
  4. EXFORGE HCT [Suspect]
     Active Substance: AMLODIPINE BESYLATE\HYDROCHLOROTHIAZIDE\VALSARTAN
     Dosage: 5 MG, UNK
     Route: 048
  5. HIGROTON [Concomitant]
     Active Substance: CHLORTHALIDONE
     Indication: PERIPHERAL VASCULAR DISORDER
     Route: 065

REACTIONS (1)
  - Off label use [Not Recovered/Not Resolved]
